FAERS Safety Report 22223142 (Version 3)
Quarter: 2023Q2

REPORT INFORMATION
  Report Type: Spontaneous
  Country: JP (occurrence: JP)
  Receive Date: 20230418
  Receipt Date: 20230505
  Transmission Date: 20230722
  Serious: Yes (Life-Threatening, Other)
  Sender: FDA-Public Use
  Company Number: JP-PFIZER INC-PV202300069794

PATIENT
  Age: 7 Decade
  Sex: Female

DRUGS (4)
  1. MEROPENEM [Suspect]
     Active Substance: MEROPENEM
     Indication: Febrile neutropenia
     Dosage: UNK
     Route: 041
  2. MEROPENEM [Suspect]
     Active Substance: MEROPENEM
     Indication: Septic shock
  3. FILGRASTIM [Suspect]
     Active Substance: FILGRASTIM
     Indication: Febrile neutropenia
     Dosage: UNK
     Route: 058
  4. NOR ADRENALIN [Concomitant]
     Dosage: UNK

REACTIONS (1)
  - Anaphylactic shock [Recovering/Resolving]
